FAERS Safety Report 11129795 (Version 1)
Quarter: 2015Q2

REPORT INFORMATION
  Report Type: Spontaneous
  Country: US (occurrence: US)
  Receive Date: 20150521
  Receipt Date: 20150521
  Transmission Date: 20150821
  Serious: No
  Sender: FDA-Public Use
  Company Number: US-PFIZER INC-2015167291

PATIENT
  Age: 81 Year
  Sex: Female
  Weight: 47.62 kg

DRUGS (10)
  1. LINZESS [Concomitant]
     Active Substance: LINACLOTIDE
  2. PANTOPRAZOLE [Concomitant]
     Active Substance: PANTOPRAZOLE SODIUM
  3. LYRICA [Suspect]
     Active Substance: PREGABALIN
     Indication: BACK PAIN
     Dosage: 75 MG, 3X/DAY
     Route: 048
     Dates: end: 20150511
  4. LYRICA [Suspect]
     Active Substance: PREGABALIN
     Dosage: 125 MG, 1X/DAY (25MG MORNING 50MG AFTERNOON 50MG NIGHT)
     Dates: start: 20150514, end: 20150514
  5. PLAVIX [Concomitant]
     Active Substance: CLOPIDOGREL BISULFATE
  6. METOPROLOL [Concomitant]
     Active Substance: METOPROLOL
  7. LORAZEPAM. [Concomitant]
     Active Substance: LORAZEPAM
     Indication: SLEEP DISORDER
  8. LYRICA [Suspect]
     Active Substance: PREGABALIN
     Dosage: 175 MG, 1X/DAY (50MG MORNING 50MG AFTERNOON 75MG NIGHT)
     Dates: start: 20150512, end: 20150512
  9. LYRICA [Suspect]
     Active Substance: PREGABALIN
     Dosage: 150 MG, 1X/DAY (50MG MORNING 50MG AFTERNOON 50MG NIGHT)
     Dates: start: 20150513, end: 20150513
  10. LACTAID [Concomitant]
     Active Substance: LACTASE

REACTIONS (4)
  - Somnolence [Recovering/Resolving]
  - Eyelid oedema [Recovered/Resolved]
  - Bursitis [Not Recovered/Not Resolved]
  - Rash [Unknown]
